FAERS Safety Report 13209055 (Version 3)
Quarter: 2017Q1

REPORT INFORMATION
  Report Type: Spontaneous
  Country: DE (occurrence: DE)
  Receive Date: 20170209
  Receipt Date: 20170331
  Transmission Date: 20170428
  Serious: Yes (Hospitalization)
  Sender: FDA-Public Use
  Company Number: DE-UNITED THERAPEUTICS-UNT-2017-001566

PATIENT
  Age: 28 Year
  Sex: Female

DRUGS (1)
  1. REMODULIN [Suspect]
     Active Substance: TREPROSTINIL
     Indication: PRODUCT USED FOR UNKNOWN INDICATION
     Dosage: 1.9 MG, DAILY DOSE
     Route: 058
     Dates: start: 20170130

REACTIONS (2)
  - Seizure [Recovered/Resolved]
  - Syncope [Recovered/Resolved]

NARRATIVE: CASE EVENT DATE: 20170201
